FAERS Safety Report 8461165-8 (Version None)
Quarter: 2012Q2

REPORT INFORMATION
  Report Type: 
  Country: None (occurrence: None)
  Receive Date: 20120625
  Receipt Date: 20120618
  Transmission Date: 20120825
  Serious: No
  Sender: FDA-Public Use
  Company Number: US-PFIZER INC-2012147290

PATIENT
  Sex: Female

DRUGS (2)
  1. VIOXX [Suspect]
     Dosage: UNK
  2. IBUPROFEN [Suspect]
     Dosage: UNK

REACTIONS (3)
  - EPIGASTRIC DISCOMFORT [None]
  - DRUG HYPERSENSITIVITY [None]
  - ANAEMIA [None]
